FAERS Safety Report 8966586 (Version 1)
Quarter: 2012Q4

REPORT INFORMATION
  Report Type: 
  Country: US (occurrence: US)
  Receive Date: 20121217
  Receipt Date: 20121217
  Transmission Date: 20130627
  Serious: Yes (Other)
  Sender: FDA-Public Use
  Company Number: US-PFIZER INC-2012317402

PATIENT
  Sex: Female

DRUGS (1)
  1. ADVIL ALLERGY AND CONGESTION RELIEF [Suspect]
     Dosage: UNK

REACTIONS (2)
  - Ageusia [Unknown]
  - Anosmia [Unknown]
